FAERS Safety Report 5473645-8 (Version None)
Quarter: 2007Q4

REPORT INFORMATION
  Report Type: 
  Country: None (occurrence: None)
  Receive Date: 20071001
  Receipt Date: 20070924
  Transmission Date: 20080405
  Serious: Yes (Other)
  Sender: FDA-Public Use
  Company Number: US-ROXANE LABORATORIES, INC-2007-BP-21519RO

PATIENT
  Age: 59 Year
  Sex: Female

DRUGS (3)
  1. DIAZEPAM [Suspect]
     Indication: SEDATIVE THERAPY
  2. FENTANYL [Suspect]
     Indication: SEDATIVE THERAPY
  3. IOHEXOL [Suspect]
     Indication: ARTERIOGRAM CAROTID
     Route: 013

REACTIONS (7)
  - APHASIA [None]
  - BRAIN DAMAGE [None]
  - DYSTONIA [None]
  - GAZE PALSY [None]
  - HEMIPARESIS [None]
  - NEUROTOXICITY [None]
  - POSTURE ABNORMAL [None]
